FAERS Safety Report 8598475-X (Version None)
Quarter: 2012Q3

REPORT INFORMATION
  Report Type: 
  Country: None (occurrence: None)
  Receive Date: 20120816
  Receipt Date: 20120810
  Transmission Date: 20120928
  Serious: Yes (Other)
  Sender: FDA-Public Use
  Company Number: PHEH2012US015666

PATIENT
  Sex: Female
  Weight: 119.27 kg

DRUGS (14)
  1. ADVIL [Concomitant]
     Dosage: UNK UKN, UNK
  2. CALCIUM [Concomitant]
     Dosage: UNK UKN, UNK
  3. OXYBUTYNIN CHLORIDE [Concomitant]
     Dosage: 5 MG, QD
     Route: 048
  4. GILENYA [Suspect]
     Dosage: UNK UKN, QD
     Route: 048
     Dates: start: 20120806
  5. CRESTOR [Concomitant]
     Dosage: 10 MG, QD
     Route: 048
  6. VITAMIN TAB [Concomitant]
     Dosage: UNK UKN, UNK
  7. VITAMIN D [Concomitant]
     Dosage: 50000 IU, QW
     Route: 048
  8. BACLOFEN [Concomitant]
     Dosage: 10 MG, TID
     Route: 048
  9. VOLTAREN [Concomitant]
     Dosage: UNK UKN, QID
  10. VITAMIN B COMPLEX CAP [Concomitant]
     Dosage: UNK UKN, UNK
  11. FAMOTIDINE [Concomitant]
     Dosage: 40 MG, BID
     Route: 048
  12. FLUOXETINE HCL [Concomitant]
     Dosage: 40 MG, QD
     Route: 048
  13. FLUTICASONE PROPIONATE [Concomitant]
     Dosage: UNK UKN, UNK
     Route: 045
  14. AMITRIPTYLINE HCL [Concomitant]
     Dosage: UNK UKN, QHS
     Route: 048

REACTIONS (5)
  - CHEST PAIN [None]
  - FEELING COLD [None]
  - CHEST DISCOMFORT [None]
  - OXYGEN SATURATION DECREASED [None]
  - BLOOD PRESSURE DECREASED [None]
